FAERS Safety Report 4645011-6 (Version None)
Quarter: 2005Q2

REPORT INFORMATION
  Report Type: 
  Country: None (occurrence: None)
  Receive Date: 20050426
  Receipt Date: 20050420
  Transmission Date: 20051028
  Serious: Yes (Hospitalization)
  Sender: FDA-Public Use
  Company Number: PHBS2005JP05679

PATIENT
  Age: 39 Year
  Sex: Male

DRUGS (1)
  1. TEGRETOL [Suspect]
     Indication: DEPRESSION
     Route: 048

REACTIONS (4)
  - CYTOMEGALOVIRUS ANTIBODY POSITIVE [None]
  - DRUG HYPERSENSITIVITY [None]
  - HERPES ZOSTER [None]
  - HUMAN HERPES VIRUS 6 SEROLOGY POSITIVE [None]
